FAERS Safety Report 5935916-8 (Version None)
Quarter: 2008Q4

REPORT INFORMATION
  Report Type: 
  Country: None (occurrence: None)
  Receive Date: 20081030
  Receipt Date: 20080715
  Transmission Date: 20090506
  Serious: No
  Sender: FDA-Public Use
  Company Number: A0737696A

PATIENT
  Age: 43 Year
  Sex: Female

DRUGS (3)
  1. IMITREX [Suspect]
     Indication: MIGRAINE
     Dosage: 20MG AS REQUIRED
     Route: 045
     Dates: start: 20080501
  2. PREMPRO [Concomitant]
  3. IMITREX [Concomitant]
     Route: 058

REACTIONS (1)
  - DRUG INEFFECTIVE [None]
